FAERS Safety Report 6767659-5 (Version None)
Quarter: 2010Q2

REPORT INFORMATION
  Report Type: 
  Country: None (occurrence: None)
  Receive Date: 20100614
  Receipt Date: 20100607
  Transmission Date: 20101027
  Serious: Yes (Death, Hospitalization, Other)
  Sender: FDA-Public Use
  Company Number: BE-CELGENEUS-013-50794-10060823

PATIENT
  Sex: Female

DRUGS (2)
  1. VIDAZA [Suspect]
     Indication: ACUTE MYELOID LEUKAEMIA
     Route: 065
     Dates: start: 20100429
  2. VIDAZA [Suspect]
     Route: 065

REACTIONS (4)
  - ASPERGILLOSIS [None]
  - BONE MARROW FAILURE [None]
  - PANCYTOPENIA [None]
  - PNEUMONIA [None]
